FAERS Safety Report 8429148-1 (Version None)
Quarter: 2012Q2

REPORT INFORMATION
  Report Type: 
  Country: None (occurrence: None)
  Receive Date: 20120612
  Receipt Date: 20120604
  Transmission Date: 20120825
  Serious: Yes (Hospitalization, Other)
  Sender: FDA-Public Use
  Company Number: US-BAYER-2012-027963

PATIENT
  Age: 35 Year
  Sex: Female
  Weight: 95.238 kg

DRUGS (6)
  1. TORADOL [Concomitant]
  2. PHENERGAN [Concomitant]
  3. EFFEXOR [Concomitant]
  4. YASMIN [Suspect]
     Indication: CONTRACEPTION
     Dosage: UNK
     Route: 048
     Dates: start: 20030501, end: 20040201
  5. YASMIN [Suspect]
     Indication: MENSTRUATION IRREGULAR
  6. NEXIUM [Concomitant]

REACTIONS (8)
  - DEEP VEIN THROMBOSIS [None]
  - MALAISE [None]
  - CHOLECYSTITIS ACUTE [None]
  - INJURY [None]
  - EMOTIONAL DISTRESS [None]
  - BILE DUCT OBSTRUCTION [None]
  - PAIN [None]
  - BILE DUCT STONE [None]
